FAERS Safety Report 8816354 (Version 1)
Quarter: 2012Q4

REPORT INFORMATION
  Report Type: Spontaneous
  Country: US (occurrence: None)
  Receive Date: 20120927
  Receipt Date: 20120927
  Transmission Date: 20130627
  Serious: No
  Sender: FDA-Public Use
  Company Number: None

PATIENT
  Sex: Female

DRUGS (2)
  1. EFFEXOR XR [Suspect]
     Dosage: 75mg 2 tabs QD oral
     Route: 048
  2. EFFEXOR XR [Suspect]
     Dosage: 75mg 2 tabs QD oral
     Route: 048

REACTIONS (2)
  - Product substitution issue [None]
  - Drug ineffective [None]
